FAERS Safety Report 4546655-2 (Version None)
Quarter: 2005Q1

REPORT INFORMATION
  Report Type: 
  Country: None (occurrence: None)
  Receive Date: 20050105
  Receipt Date: 20041221
  Transmission Date: 20050727
  Serious: Yes (Death, Hospitalization)
  Sender: FDA-Public Use
  Company Number: 2004AL000920

PATIENT
  Age: 37 Year
  Sex: Male

DRUGS (6)
  1. CHILDREN'S APAP ELIXIR (ACETAMINOPHEN) (ALPHARMA) [Suspect]
     Dosage: PO
     Route: 048
  2. INFANTS' APAP DROPS (ACETAMINOPHEN) (ALPHARMA) [Suspect]
     Dosage: PO
     Route: 048
  3. PHENCYCLIDINE [Suspect]
     Dosage: PO
     Route: 048
  4. IBUPROFEN ORAL SUSPENSION USPA, 100 MG/5ML (OTC) (ALPHARMA) [Suspect]
  5. IBUPROFEN ORAL SUSPENSION USP, 100 MG/5 ML (RX) (ALPHARMA) [Suspect]
  6. ETHANOL [Suspect]

REACTIONS (14)
  - AGITATION [None]
  - ALANINE AMINOTRANSFERASE INCREASED [None]
  - AMMONIA INCREASED [None]
  - ASPARTATE AMINOTRANSFERASE INCREASED [None]
  - BLOOD BICARBONATE DECREASED [None]
  - BLOOD CREATINE INCREASED [None]
  - BLOOD PH DECREASED [None]
  - CARDIAC ARREST [None]
  - COMPLETED SUICIDE [None]
  - CONFUSIONAL STATE [None]
  - INTENTIONAL MISUSE [None]
  - INTERNATIONAL NORMALISED RATIO INCREASED [None]
  - PROTHROMBIN TIME PROLONGED [None]
  - RESPIRATORY ARREST [None]
